FAERS Safety Report 19560807 (Version 1)
Quarter: 2021Q3

REPORT INFORMATION
  Report Type: Report from Study
  Country: BR (occurrence: BR)
  Receive Date: 20210715
  Receipt Date: 20210715
  Transmission Date: 20211014
  Serious: Yes (Other)
  Sender: FDA-Public Use
  Company Number: NVSC2021BR129578

PATIENT
  Sex: Female

DRUGS (4)
  1. RIBOCICLIB. [Suspect]
     Active Substance: RIBOCICLIB
     Indication: PRODUCT USED FOR UNKNOWN INDICATION
     Dosage: 3 DF (21DAYS AND STOP FOR 1 WEEK)
     Route: 065
     Dates: start: 20201010
  2. RIBOCICLIB. [Suspect]
     Active Substance: RIBOCICLIB
     Dosage: 3 DF (21DAYS AND STOP FOR 1 WEEK) (NEW CYCLE)
     Route: 065
     Dates: start: 20210531
  3. MUVINLAX [Concomitant]
     Active Substance: ELECTROLYTES NOS\POLYETHYLENE GLYCOL 3350
     Indication: ILL-DEFINED DISORDER
     Dosage: UNK UNK, QD
     Route: 065
  4. RIBOCICLIB. [Suspect]
     Active Substance: RIBOCICLIB
     Dosage: UNK
     Route: 065
     Dates: start: 202010

REACTIONS (5)
  - Alopecia [Not Recovered/Not Resolved]
  - White blood cell count decreased [Unknown]
  - Blood iron decreased [Recovered/Resolved]
  - Asthenia [Recovering/Resolving]
  - Oesophageal haemorrhage [Recovered/Resolved]
